FAERS Safety Report 7935054-9 (Version None)
Quarter: 2011Q4

REPORT INFORMATION
  Report Type: 
  Country: None (occurrence: None)
  Receive Date: 20111122
  Receipt Date: 20111115
  Transmission Date: 20120403
  Serious: Yes (Other)
  Sender: FDA-Public Use
  Company Number: JP-ASTRAZENECA-2011SE70048

PATIENT
  Sex: Male

DRUGS (2)
  1. CRESTOR [Suspect]
     Route: 048
  2. URINORM [Concomitant]
     Route: 048

REACTIONS (2)
  - RENAL FAILURE ACUTE [None]
  - LIVER FUNCTION TEST ABNORMAL [None]
